FAERS Safety Report 10396784 (Version 1)
Quarter: 2014Q3

REPORT INFORMATION
  Report Type: Spontaneous
  Country: US (occurrence: None)
  Receive Date: 20140819
  Receipt Date: 20140819
  Transmission Date: 20150326
  Serious: No
  Sender: FDA-Public Use
  Company Number: None

PATIENT
  Age: 54 Year
  Sex: Female
  Weight: 111.59 kg

DRUGS (1)
  1. BELVIQ [Suspect]
     Active Substance: LORCASERIN HYDROCHLORIDE
     Indication: WEIGHT INCREASED
     Dosage: ONE PILL
     Dates: start: 20140813, end: 20140818

REACTIONS (7)
  - Headache [None]
  - Asthenia [None]
  - Chills [None]
  - Hyperhidrosis [None]
  - Cough [None]
  - Dizziness [None]
  - Myalgia [None]

NARRATIVE: CASE EVENT DATE: 20140813
